FAERS Safety Report 18380332 (Version 2)
Quarter: 2020Q4

REPORT INFORMATION
  Report Type: Spontaneous
  Country: ES (occurrence: ES)
  Receive Date: 20201013
  Receipt Date: 20201021
  Transmission Date: 20210114
  Serious: Yes (Death, Other)
  Sender: FDA-Public Use
  Company Number: ES-AMGEN-ESPSP2020162269

PATIENT

DRUGS (1)
  1. PANITUMUMAB [Suspect]
     Active Substance: PANITUMUMAB
     Indication: COLORECTAL CANCER
     Dosage: UNK
     Route: 065

REACTIONS (7)
  - Therapy partial responder [Unknown]
  - K-ras gene mutation [Unknown]
  - BRAF gene mutation [Unknown]
  - Colorectal cancer [Unknown]
  - Drug resistance [Unknown]
  - Toxicity to various agents [Unknown]
  - Death [Fatal]
